FAERS Safety Report 4991233-4 (Version None)
Quarter: 2006Q2

REPORT INFORMATION
  Report Type: 
  Country: None (occurrence: None)
  Receive Date: 20060427
  Receipt Date: 20060412
  Transmission Date: 20061013
  Serious: Yes (Other)
  Sender: FDA-Public Use
  Company Number: GXKR2006JP02141

PATIENT
  Age: 66 Year
  Sex: Male

DRUGS (1)
  1. RIFAMPICIN [Suspect]

REACTIONS (1)
  - PNEUMONIA [None]
